FAERS Safety Report 9378860 (Version 2)
Quarter: 2013Q3

REPORT INFORMATION
  Report Type: Spontaneous
  Country: US (occurrence: None)
  Receive Date: 20130626
  Receipt Date: 20130802
  Transmission Date: 20140515
  Serious: Yes (Life-Threatening)
  Sender: FDA-Public Use
  Company Number: 1760555

PATIENT
  Age: 32 Year
  Sex: Male

DRUGS (23)
  1. IRINOTECAN [Suspect]
     Indication: NEOPLASM
     Route: 042
     Dates: start: 20130124, end: 20130124
  2. IRINOTECAN [Suspect]
     Route: 042
     Dates: start: 20130124, end: 20130124
  3. IRINOTECAN [Suspect]
     Route: 042
     Dates: start: 20130124, end: 20130124
  4. VELIPARIB [Suspect]
     Indication: NEOPLASM
     Route: 048
     Dates: start: 20130124
  5. 5-FLUOROURACIL /00098801/ [Suspect]
     Indication: NEOPLASM
     Route: 042
     Dates: start: 20130124, end: 20130220
  6. 5-FLUOROURACIL /00098801/ [Suspect]
     Route: 042
     Dates: start: 20130124, end: 20130220
  7. FOLINIC ACID [Suspect]
     Indication: NEOPLASM
     Route: 042
     Dates: start: 20130124
  8. DIAZEPAM [Concomitant]
  9. NAPROXEN SODIUM [Concomitant]
  10. LIDOCAINE [Concomitant]
  11. OXYCODONE HYDROCHLORIDE [Concomitant]
  12. ZOLPIDEM TARTRATE [Concomitant]
  13. ONDANSETRON [Concomitant]
  14. NAPROXEN SODIUM [Concomitant]
  15. MULTIVITAMINS [Concomitant]
  16. MACROGOL [Concomitant]
  17. ANTIOXIDANT [Concomitant]
  18. HYDROMORPHONE HYDROCHLORIDE [Concomitant]
  19. FILGRASTIM [Concomitant]
  20. PROCHLORPERAZINE EDISYLATE [Concomitant]
  21. ONDANSETRON [Concomitant]
  22. ESOMEPRAZOLE MAGNESIUM [Concomitant]
  23. DEXAMETHASONE [Concomitant]

REACTIONS (1)
  - Pulmonary embolism [None]
